FAERS Safety Report 9059404 (Version 2)
Quarter: 2013Q1

REPORT INFORMATION
  Report Type: Spontaneous
  Country: JP (occurrence: JP)
  Receive Date: 20130211
  Receipt Date: 20130314
  Transmission Date: 20140127
  Serious: Yes (Hospitalization)
  Sender: FDA-Public Use
  Company Number: JP-GLAXOSMITHKLINE-B0866198A

PATIENT
  Age: 46 None
  Sex: Female
  Weight: 43 kg

DRUGS (12)
  1. LAMICTAL [Suspect]
     Indication: BIPOLAR DISORDER
     Dosage: 25MG PER DAY
     Route: 048
     Dates: start: 20121207, end: 20121220
  2. LAMICTAL [Suspect]
     Indication: BIPOLAR DISORDER
     Dosage: 50MG PER DAY
     Route: 048
     Dates: start: 20121221, end: 20121222
  3. LANDSEN [Concomitant]
     Indication: MENTAL DISORDER
     Dosage: .5MG PER DAY
     Route: 048
     Dates: start: 20040424
  4. VEGETAMIN-B [Concomitant]
     Indication: MENTAL DISORDER
     Dosage: 3IUAX PER DAY
     Route: 048
     Dates: start: 20040424
  5. FLUVOXAMINE MALEATE [Concomitant]
     Indication: MENTAL DISORDER
     Dosage: 150MG PER DAY
     Route: 048
     Dates: start: 20070323
  6. DALMATE [Concomitant]
     Indication: SLEEP DISORDER
     Dosage: 30MG PER DAY
     Route: 048
     Dates: start: 20121109
  7. FLUNITRAZEPAM [Concomitant]
     Indication: SLEEP DISORDER
     Dosage: 4MG PER DAY
     Route: 048
     Dates: start: 20040424
  8. BENZALIN [Concomitant]
     Indication: SLEEP DISORDER
     Dosage: 10MG PER DAY
     Route: 048
     Dates: start: 20121212
  9. LAC-B [Concomitant]
     Indication: ABDOMINAL DISCOMFORT
     Dosage: 1G THREE TIMES PER DAY
     Route: 048
     Dates: start: 20120518
  10. CALONAL [Concomitant]
     Route: 048
     Dates: start: 20121219, end: 20121221
  11. CIPROXAN [Concomitant]
     Route: 048
     Dates: start: 20121221, end: 20121223
  12. SELBEX [Concomitant]
     Route: 048
     Dates: start: 20121221, end: 20121223

REACTIONS (20)
  - Stevens-Johnson syndrome [Recovering/Resolving]
  - Liver disorder [Recovering/Resolving]
  - Pyrexia [Recovering/Resolving]
  - Generalised erythema [Unknown]
  - Conjunctival hyperaemia [Unknown]
  - Skin erosion [Unknown]
  - Influenza [Unknown]
  - Ocular hyperaemia [Unknown]
  - Erythema of eyelid [Unknown]
  - Eye oedema [Unknown]
  - Eyelid oedema [Unknown]
  - Conjunctival disorder [Unknown]
  - Lymphadenopathy [Unknown]
  - Oral mucosa erosion [Unknown]
  - Lip erosion [Unknown]
  - Oral mucosal eruption [Unknown]
  - Enanthema [Unknown]
  - Decreased appetite [Unknown]
  - Malaise [Unknown]
  - Rash [Unknown]
